FAERS Safety Report 10590383 (Version 1)
Quarter: 2014Q4

REPORT INFORMATION
  Report Type: Spontaneous
  Country: US (occurrence: US)
  Receive Date: 20141118
  Receipt Date: 20141118
  Transmission Date: 20150529
  Serious: Yes (Other)
  Sender: FDA-Public Use
  Company Number: US-PFIZER INC-2014316784

PATIENT
  Age: 58 Year
  Sex: Female
  Weight: 75 kg

DRUGS (5)
  1. CORTEF [Suspect]
     Active Substance: HYDROCORTISONE
     Indication: ADRENAL INSUFFICIENCY
     Dosage: 20 MG, 2X/DAY
     Dates: start: 2011
  2. NEURONTIN [Concomitant]
     Active Substance: GABAPENTIN
     Indication: NERVE INJURY
     Dosage: 300 MG, 3X/DAY
  3. ZOLOFT [Concomitant]
     Active Substance: SERTRALINE HYDROCHLORIDE
     Dosage: UNK
  4. LYRICA [Concomitant]
     Active Substance: PREGABALIN
     Indication: NERVE INJURY
  5. LYRICA [Concomitant]
     Active Substance: PREGABALIN
     Indication: HERPES ZOSTER
     Dosage: 75 MG, 2X/DAY

REACTIONS (8)
  - Traumatic haematoma [Unknown]
  - Renal disorder [Unknown]
  - Uterine cancer [Unknown]
  - Incoherent [Unknown]
  - Head injury [Unknown]
  - Intentional product misuse [Unknown]
  - Loss of consciousness [Unknown]
  - Blood pressure decreased [Not Recovered/Not Resolved]

NARRATIVE: CASE EVENT DATE: 201304
